FAERS Safety Report 14154811 (Version 3)
Quarter: 2017Q4

REPORT INFORMATION
  Report Type: Spontaneous
  Country: US (occurrence: US)
  Receive Date: 20171102
  Receipt Date: 20171208
  Transmission Date: 20180321
  Serious: Yes (Disabling)
  Sender: FDA-Public Use
  Company Number: US-009507513-1710USA014633

PATIENT
  Age: 31 Year
  Sex: Female

DRUGS (1)
  1. NEXPLANON [Suspect]
     Active Substance: ETONOGESTREL
     Dosage: 1 ROD EVERY THREE YEARS
     Route: 059
     Dates: start: 20170713, end: 20170920

REACTIONS (8)
  - Neuralgia [Not Recovered/Not Resolved]
  - Complication associated with device [Recovered/Resolved]
  - Nerve injury [Unknown]
  - Migration of implanted drug [Recovered/Resolved]
  - Hypoaesthesia [Unknown]
  - Complication of device removal [Recovered/Resolved]
  - Neuralgia [Unknown]
  - Dizziness [Unknown]

NARRATIVE: CASE EVENT DATE: 2017
